FAERS Safety Report 19322516 (Version 1)
Quarter: 2021Q2

REPORT INFORMATION
  Report Type: Spontaneous
  Country: US (occurrence: US)
  Receive Date: 20210528
  Receipt Date: 20210528
  Transmission Date: 20210717
  Serious: Yes (Life-Threatening, Hospitalization, Other)
  Sender: FDA-Public Use
  Company Number: US-DRREDDYS-USA/USA/21/0135864

PATIENT
  Age: 60 Year
  Sex: Male

DRUGS (2)
  1. MIDAZOLAM. [Concomitant]
     Active Substance: MIDAZOLAM
     Indication: SEDATION
     Route: 042
  2. FENTANYL CITRATE. [Suspect]
     Active Substance: FENTANYL CITRATE
     Indication: SEDATION
     Route: 042

REACTIONS (4)
  - Respiratory failure [Recovered/Resolved]
  - Muscle rigidity [Recovered/Resolved]
  - Abdominal rigidity [Recovered/Resolved]
  - Laryngospasm [Recovered/Resolved]
